FAERS Safety Report 19507087 (Version 1)
Quarter: 2021Q3

REPORT INFORMATION
  Report Type: Other
  Country: KR (occurrence: KR)
  Receive Date: 20210708
  Receipt Date: 20210708
  Transmission Date: 20211014
  Serious: Yes (Hospitalization)
  Sender: FDA-Public Use
  Company Number: KR-ROCHE-2862124

PATIENT
  Age: 59 Year
  Sex: Male
  Weight: 46 kg

DRUGS (13)
  1. ATEZOLIZUMAB. [Suspect]
     Active Substance: ATEZOLIZUMAB
     Indication: NON-SMALL CELL LUNG CANCER
     Route: 042
     Dates: start: 20200827, end: 20200827
  2. FOIPAN [Concomitant]
     Active Substance: CAMOSTAT MESYLATE
     Indication: CHRONIC GASTRITIS
     Route: 048
     Dates: start: 20200831
  3. FEROBA YOU SR [Concomitant]
     Indication: ANAEMIA
     Route: 048
     Dates: start: 20200721
  4. MACPERAN [Concomitant]
     Active Substance: METOCLOPRAMIDE HYDROCHLORIDE
     Indication: CHRONIC GASTRITIS
     Route: 048
     Dates: start: 20200922
  5. ATEZOLIZUMAB. [Suspect]
     Active Substance: ATEZOLIZUMAB
     Route: 042
     Dates: start: 20201012, end: 20201012
  6. GANEPASOL [Concomitant]
     Indication: PROPHYLAXIS
     Route: 042
     Dates: start: 20200922
  7. ANYCOUGH [Concomitant]
     Active Substance: THEOBROMINE
     Indication: BRONCHITIS CHRONIC
     Route: 048
     Dates: start: 20200330
  8. LANSTON LFDT [Concomitant]
     Active Substance: LANSOPRAZOLE
     Indication: CHRONIC GASTRITIS
     Route: 048
     Dates: start: 20200922
  9. NEXILEN S [Concomitant]
     Indication: CHRONIC GASTRITIS
     Route: 048
     Dates: start: 20200922
  10. WELLTAMIN [Concomitant]
     Indication: PROPHYLAXIS
     Route: 048
     Dates: start: 20200330
  11. ATEZOLIZUMAB. [Suspect]
     Active Substance: ATEZOLIZUMAB
     Route: 042
     Dates: start: 20200922, end: 20200922
  12. POLYBUTINE [Concomitant]
     Indication: CHRONIC GASTRITIS
     Route: 048
     Dates: start: 20200831, end: 20201215
  13. BACLOFEN. [Concomitant]
     Active Substance: BACLOFEN
     Indication: METASTASES TO CENTRAL NERVOUS SYSTEM
     Route: 048
     Dates: start: 20200925

REACTIONS (3)
  - Hiccups [Recovered/Resolved]
  - Vomiting [Recovered/Resolved]
  - Depressed mood [Recovered/Resolved]

NARRATIVE: CASE EVENT DATE: 20200827
